FAERS Safety Report 4783209-7 (Version None)
Quarter: 2005Q3

REPORT INFORMATION
  Report Type: 
  Country: None (occurrence: None)
  Receive Date: 20050929
  Receipt Date: 20050923
  Transmission Date: 20060218
  Serious: Yes (Other)
  Sender: FDA-Public Use
  Company Number: CN-GLAXOSMITHKLINE-B0395378A

PATIENT
  Age: 30 Year
  Sex: Male

DRUGS (1)
  1. HEPTODIN [Suspect]
     Dosage: 100MG PER DAY
     Route: 048
     Dates: start: 20030310

REACTIONS (3)
  - ALANINE AMINOTRANSFERASE INCREASED [None]
  - HBV-DNA POLYMERASE INCREASED [None]
  - HEPATITIS B VIRUS [None]
